FAERS Safety Report 20953418 (Version 1)
Quarter: 2022Q2

REPORT INFORMATION
  Report Type: Spontaneous
  Country: BD (occurrence: BD)
  Receive Date: 20220613
  Receipt Date: 20220613
  Transmission Date: 20220721
  Serious: Yes (Hospitalization)
  Sender: FDA-Public Use
  Company Number: BD-LUPIN PHARMACEUTICALS INC.-2022-08439

PATIENT
  Age: 15 Year
  Sex: Female

DRUGS (3)
  1. CEFTRIAXONE [Suspect]
     Active Substance: CEFTRIAXONE
     Indication: Encephalopathy
     Dosage: 2 GRAM, BID
     Route: 065
  2. CALCIUM [Suspect]
     Active Substance: CALCIUM
     Indication: Encephalopathy
     Dosage: UNK
     Route: 042
  3. ACYCLOVIR [Suspect]
     Active Substance: ACYCLOVIR
     Indication: Encephalopathy
     Dosage: 500 MG, TID
     Route: 065

REACTIONS (2)
  - Drug ineffective for unapproved indication [Unknown]
  - Off label use [Unknown]
